FAERS Safety Report 9981279 (Version 1)
Quarter: 2014Q1

REPORT INFORMATION
  Report Type: Spontaneous
  Country: PH (occurrence: PH)
  Receive Date: 20140307
  Receipt Date: 20140307
  Transmission Date: 20141002
  Serious: Yes (Other)
  Sender: FDA-Public Use
  Company Number: PH-BAYER-2014-029355

PATIENT
  Age: 34 Year
  Sex: Female
  Weight: 52.15 kg

DRUGS (1)
  1. YASMIN [Suspect]
     Indication: ORAL CONTRACEPTION
     Route: 048

REACTIONS (3)
  - Rash pruritic [None]
  - Pruritus [Recovering/Resolving]
  - Rash [Recovering/Resolving]
